FAERS Safety Report 9222836 (Version 1)
Quarter: 2013Q2

REPORT INFORMATION
  Report Type: Spontaneous
  Country: PT (occurrence: PT)
  Receive Date: 20130410
  Receipt Date: 20130410
  Transmission Date: 20140414
  Serious: Yes (Life-Threatening, Hospitalization)
  Sender: FDA-Public Use
  Company Number: PT-ROCHE-1206684

PATIENT
  Age: 75 Year
  Sex: Male
  Weight: 84 kg

DRUGS (4)
  1. ACTILYSE [Suspect]
     Indication: CEREBROVASCULAR ACCIDENT
     Route: 042
     Dates: start: 20100823
  2. CAPTOPRIL [Suspect]
     Indication: HYPERTENSION
     Route: 060
     Dates: start: 20100823
  3. METFORMIN [Concomitant]
     Indication: TYPE 2 DIABETES MELLITUS
     Dosage: 1 UNIT DOSE
     Route: 065
     Dates: start: 20100823
  4. CANDESARTAN CILEXETIL [Concomitant]
     Indication: HYPERTENSION
     Route: 065
     Dates: end: 20100823

REACTIONS (4)
  - Respiratory arrest [Recovered/Resolved with Sequelae]
  - Pneumonia [Recovered/Resolved]
  - Tongue oedema [Recovered/Resolved with Sequelae]
  - Laryngeal oedema [Recovered/Resolved with Sequelae]
